FAERS Safety Report 19123646 (Version 1)
Quarter: 2021Q2

REPORT INFORMATION
  Report Type: Report from Study
  Country: BR (occurrence: BR)
  Receive Date: 20210412
  Receipt Date: 20210412
  Transmission Date: 20210717
  Serious: Yes (Other)
  Sender: FDA-Public Use
  Company Number: NVSC2021BR075725

PATIENT
  Sex: Female

DRUGS (1)
  1. PIQRAY [Suspect]
     Active Substance: ALPELISIB
     Indication: PRODUCT USED FOR UNKNOWN INDICATION
     Dosage: UNK
     Route: 065

REACTIONS (7)
  - Erythema [Unknown]
  - Eye discharge [Unknown]
  - Eye disorder [Unknown]
  - Dyspnoea [Unknown]
  - Diabetes mellitus [Unknown]
  - Skin discolouration [Unknown]
  - Skin plaque [Unknown]
